FAERS Safety Report 20811024 (Version 4)
Quarter: 2024Q1

REPORT INFORMATION
  Report Type: Spontaneous
  Country: US (occurrence: US)
  Receive Date: 20220510
  Receipt Date: 20240109
  Transmission Date: 20240410
  Serious: No
  Sender: FDA-Public Use
  Company Number: US-PFIZER INC-202101781167

PATIENT
  Age: 67 Year
  Sex: Female

DRUGS (1)
  1. XELJANZ XR [Suspect]
     Active Substance: TOFACITINIB CITRATE
     Dosage: 11 MG

REACTIONS (7)
  - Stress [Unknown]
  - Insomnia [Unknown]
  - Malaise [Unknown]
  - Pain [Unknown]
  - Confusional state [Unknown]
  - Psychiatric symptom [Unknown]
  - Arthritis [Unknown]
